FAERS Safety Report 5337143-4 (Version None)
Quarter: 2007Q2

REPORT INFORMATION
  Report Type: 
  Country: None (occurrence: None)
  Receive Date: 20070523
  Receipt Date: 20070511
  Transmission Date: 20071010
  Serious: Yes (Disabling)
  Sender: FDA-Public Use
  Company Number: FI-1160476

PATIENT
  Age: 28 Year
  Sex: Male

DRUGS (5)
  1. VEXOL [Suspect]
     Indication: PROPHYLAXIS
     Dosage: EYE DROPS, SUSPENSION 1 GTT OPERATED EYE BID MONTH, STARTING AFTER THE 4 DAY OPHTHALMIC
     Route: 047
  2. VOLTAREN OPHTHALMIC (DICLOFENAC SODIUM) 0.1% [Suspect]
     Indication: ANALGESIC EFFECT
     Dosage: EYE DROPS, SOLUTION  1 GTT OPERATED EYE TID X 2 DAYS OPHTHALMIC
     Route: 047
  3. OFTAQUIX (LEVOFLOXACIN) [Concomitant]
  4. CHLOROMYCETIN (CHLORAMPHENICOL) [Concomitant]
  5. OCULAC (POLYVIDONE) [Concomitant]

REACTIONS (4)
  - CORNEAL THINNING [None]
  - DRUG INTERACTION [None]
  - HYPERMETROPIA [None]
  - REFRACTION DISORDER [None]
